FAERS Safety Report 14272755 (Version 1)
Quarter: 2017Q4

REPORT INFORMATION
  Report Type: Spontaneous
  Country: US (occurrence: US)
  Receive Date: 20171212
  Receipt Date: 20171212
  Transmission Date: 20180321
  Serious: Yes (Other)
  Sender: FDA-Public Use
  Company Number: None

PATIENT
  Age: 32 Year
  Sex: Female
  Weight: 51.75 kg

DRUGS (2)
  1. CLINDAMYCIN. [Suspect]
     Active Substance: CLINDAMYCIN
     Indication: STAPHYLOCOCCAL INFECTION
     Route: 048
  2. FLAGL [Concomitant]

REACTIONS (3)
  - Diarrhoea [None]
  - Clostridium test positive [None]
  - Malaise [None]

NARRATIVE: CASE EVENT DATE: 20170901
